FAERS Safety Report 8906284 (Version 4)
Quarter: 2013Q2

REPORT INFORMATION
  Report Type: Spontaneous
  Country: GB (occurrence: None)
  Receive Date: 20121107
  Receipt Date: 20130524
  Transmission Date: 20140414
  Serious: Yes (Other)
  Sender: FDA-Public Use
  Company Number: AUR-APL-2012-04622

PATIENT
  Age: 26 Year
  Sex: Female

DRUGS (3)
  1. RISPERIDONE [Suspect]
     Indication: PSYCHOTIC DISORDER
  2. ARIPIPRAZOLE [Suspect]
     Indication: PRODUCT USED FOR UNKNOWN INDICATION
  3. SERTRALINE (SERTRALINE) [Concomitant]

REACTIONS (5)
  - Abnormal behaviour [None]
  - Aggression [None]
  - Anxiety [None]
  - Treatment noncompliance [None]
  - Thinking abnormal [None]
